FAERS Safety Report 8697432 (Version 3)
Quarter: 2012Q4

REPORT INFORMATION
  Report Type: 
  Country: JP (occurrence: JP)
  Receive Date: 20120801
  Receipt Date: 20121218
  Transmission Date: 20130627
  Serious: Yes (Other)
  Sender: FDA-Public Use
  Company Number: JP-009507513-1207JPN011080

PATIENT
  Age: 58 Year
  Sex: Female
  Weight: 53 kg

DRUGS (10)
  1. PEGINTRON [Suspect]
     Indication: CHRONIC HEPATITIS C
     Dosage: 1.5 Microgram per kilogram, qw
     Route: 058
     Dates: start: 20120508, end: 20121017
  2. REBETOL [Suspect]
     Indication: CHRONIC HEPATITIS C
     Dosage: 600 mg, qd
     Route: 048
     Dates: start: 20120508, end: 20120703
  3. REBETOL [Suspect]
     Dosage: 400 mg, qd
     Route: 048
     Dates: start: 20120704, end: 20120925
  4. REBETOL [Suspect]
     Dosage: 600 mg, qd
     Route: 048
     Dates: start: 20120926, end: 20121017
  5. TELAVIC [Suspect]
     Indication: CHRONIC HEPATITIS C
     Dosage: 1500 mg, qd
     Route: 048
     Dates: start: 20120508, end: 20120801
  6. POTASSIUM IODIDE [Concomitant]
     Indication: BASEDOW^S DISEASE
     Dosage: 50 mg, qd; Formulation: POR
     Route: 048
  7. FEROTYM [Concomitant]
     Indication: IRON DEFICIENCY ANAEMIA
     Dosage: 100 mg, qd; Formulation: POR
     Route: 048
  8. LIVALO [Concomitant]
     Indication: HYPERLIPIDAEMIA
     Dosage: 1 mg, qd; Formulation: POR
     Route: 048
  9. EPADEL S [Concomitant]
     Indication: HYPERLIPIDAEMIA
     Dosage: 180 mg, qd; Formulation: POR
     Route: 048
  10. CLARITIN REDITABS [Concomitant]
     Indication: PROPHYLAXIS
     Dosage: 10 mg, qd
     Route: 048

REACTIONS (4)
  - Anaemia [Not Recovered/Not Resolved]
  - Anaemia [Not Recovered/Not Resolved]
  - Anaemia [Not Recovered/Not Resolved]
  - Rash [Recovered/Resolved]
